FAERS Safety Report 10900972 (Version 1)
Quarter: 2015Q1

REPORT INFORMATION
  Report Type: Spontaneous
  Country: US (occurrence: US)
  Receive Date: 20150310
  Receipt Date: 20150310
  Transmission Date: 20150721
  Serious: Yes (Hospitalization)
  Sender: FDA-Public Use
  Company Number: US-NOVOPROD-441175

PATIENT
  Age: 58 Year
  Sex: Male

DRUGS (1)
  1. VICTOZA [Suspect]
     Active Substance: LIRAGLUTIDE
     Indication: TYPE 2 DIABETES MELLITUS
     Dosage: UNK
     Route: 058
     Dates: start: 20100722, end: 20100811

REACTIONS (9)
  - Nausea [None]
  - Diarrhoea [None]
  - Swelling face [Unknown]
  - Lip swelling [Unknown]
  - Pancreatic disorder [Recovered/Resolved]
  - Vomiting [None]
  - Back pain [Unknown]
  - Rash [Unknown]
  - Local swelling [Unknown]

NARRATIVE: CASE EVENT DATE: 20100802
